FAERS Safety Report 14905301 (Version 1)
Quarter: 2018Q2

REPORT INFORMATION
  Report Type: Spontaneous
  Country: US (occurrence: US)
  Receive Date: 20180517
  Receipt Date: 20180517
  Transmission Date: 20180711
  Serious: Yes (Hospitalization)
  Sender: FDA-Public Use
  Company Number: US-SA-2017SA245754

PATIENT

DRUGS (3)
  1. SOLOSTAR [Suspect]
     Active Substance: DEVICE
     Dates: start: 20171127, end: 20171128
  2. TOUJEO [Suspect]
     Active Substance: INSULIN GLARGINE
     Route: 051
     Dates: start: 20171127, end: 20171128
  3. LANTUS [Concomitant]
     Active Substance: INSULIN GLARGINE
     Route: 051

REACTIONS (1)
  - Hypersensitivity [Recovered/Resolved]
